FAERS Safety Report 8828939 (Version 1)
Quarter: 2012Q4

REPORT INFORMATION
  Report Type: Spontaneous
  Country: GB (occurrence: None)
  Receive Date: 20121004
  Receipt Date: 20121004
  Transmission Date: 20130627
  Serious: Yes (Hospitalization)
  Sender: FDA-Public Use
  Company Number: HB-DEXPHARM-20121266

PATIENT
  Age: 50 Year

DRUGS (14)
  1. OMEPRAZOLE [Suspect]
     Route: 048
     Dates: start: 20120801
  2. OMEPRAZOLE [Suspect]
  3. ASPIRIN [Concomitant]
  4. BISOPROLOL [Concomitant]
  5. BUMETANIDE [Concomitant]
  6. DIGOXIN [Concomitant]
  7. LACTULOSE [Concomitant]
  8. METFORMIN [Concomitant]
  9. MIRTAZAPINE [Concomitant]
  10. PARACETAMOL [Concomitant]
  11. RAMIPRIL [Concomitant]
  12. SIMVASTATIN [Concomitant]
  13. SPIRINOLACTONE [Concomitant]
  14. THIAMINE [Concomitant]

REACTIONS (2)
  - Chapped lips [None]
  - Lip pain [None]
